FAERS Safety Report 5351639-0 (Version None)
Quarter: 2007Q2

REPORT INFORMATION
  Report Type: 
  Country: None (occurrence: None)
  Receive Date: 20070518
  Receipt Date: 20070306
  Transmission Date: 20071010
  Serious: No
  Sender: FDA-Public Use
  Company Number: TPA2006A01999

PATIENT
  Age: 64 Year
  Sex: Female
  Weight: 58.9676 kg

DRUGS (5)
  1. ROZEREM [Suspect]
     Indication: INSOMNIA
     Dosage: 8 MG, HS, PER ORAL
     Route: 048
     Dates: start: 20061106
  2. SYNTHROID [Concomitant]
  3. MULTITECH MULTIVITAMIN(ERGOCALCIFEROL, ASCORBIC ACD, FOLIC ACID, THIAM [Concomitant]
  4. OPC-3 ANTIOXIDANT (ALL OTHER THERAPEUTIC PRODUCTS) [Concomitant]
  5. COMPOUND B12 (CYANOCOBALAMIN) [Concomitant]

REACTIONS (5)
  - AGITATION [None]
  - INITIAL INSOMNIA [None]
  - INSOMNIA [None]
  - PSYCHOMOTOR HYPERACTIVITY [None]
  - SOMNOLENCE [None]
